FAERS Safety Report 7493396-8 (Version None)
Quarter: 2011Q2

REPORT INFORMATION
  Report Type: 
  Country: None (occurrence: None)
  Receive Date: 20110520
  Receipt Date: 20110517
  Transmission Date: 20111010
  Serious: Yes (Other)
  Sender: FDA-Public Use
  Company Number: DE-PFIZER INC-2011105406

PATIENT
  Age: 32 Year
  Sex: Male

DRUGS (4)
  1. LYRICA [Suspect]
     Dosage: 300 MG, UNK
  2. OXAZEPAM [Concomitant]
     Dosage: UNK
  3. DIAZEPAM [Concomitant]
     Dosage: UNK
  4. MESALAZINE [Concomitant]
     Indication: COLITIS ULCERATIVE
     Dosage: 500 MG, UNK

REACTIONS (1)
  - DRUG ABUSE [None]
